FAERS Safety Report 4638254-9 (Version None)
Quarter: 2005Q2

REPORT INFORMATION
  Report Type: 
  Country: None (occurrence: None)
  Receive Date: 20050415
  Receipt Date: 20050401
  Transmission Date: 20051028
  Serious: Yes (Hospitalization, Disabling)
  Sender: FDA-Public Use
  Company Number: 2005054127

PATIENT
  Age: 28 Year
  Sex: Female
  Weight: 65.7716 kg

DRUGS (6)
  1. ZOLOFT [Suspect]
     Indication: POST-TRAUMATIC STRESS DISORDER
     Dosage: 25 MEQ (25 MG, 1 IN 1 D), ORAL
     Route: 048
  2. HYOSCINE HBR HYT [Suspect]
     Indication: MOTION SICKNESS
     Dosage: 1.5 MG (UNKNOWN), TRANSDERMAL
     Route: 062
     Dates: start: 20050212, end: 20050219
  3. CO-ADVIL (IBUPROFEN, PSEUDOEPHEDRINE HYDROCHLORIDE) [Suspect]
     Indication: ILL-DEFINED DISORDER
     Dosage: UNKNOWN
     Route: 065
     Dates: start: 20050201
  4. LEVOFLOXACIN [Suspect]
     Indication: PHARYNGITIS STREPTOCOCCAL
     Dosage: 500 MG (1 IN 1 D),ORAL
     Route: 048
     Dates: start: 20050226
  5. ALL OTHER NON-THERAPEUTIC PRODUCTS (ALL OTHER NON-THERAPEUTIC PRODUCTS [Suspect]
     Indication: ILL-DEFINED DISORDER
     Dosage: UNKNOWN
     Route: 065
  6. ALL OTHER NON-THERAPEUTIC PRODUCTS (ALL OTHER NON-THERAPEUTIC PRODUCTS [Suspect]
     Indication: ANXIETY
     Dosage: UNKNOWN
     Route: 065
     Dates: start: 20050227

REACTIONS (10)
  - ACTIVITIES OF DAILY LIVING IMPAIRED [None]
  - ANXIETY [None]
  - COMA [None]
  - CRYING [None]
  - DEHYDRATION [None]
  - DISORIENTATION [None]
  - EMOTIONAL DISORDER [None]
  - IRRITABILITY [None]
  - PHARYNGITIS STREPTOCOCCAL [None]
  - URINARY TRACT INFECTION [None]
